FAERS Safety Report 11522068 (Version 1)
Quarter: 2015Q3

REPORT INFORMATION
  Report Type: Spontaneous
  Country: DK (occurrence: DK)
  Receive Date: 20150918
  Receipt Date: 20150918
  Transmission Date: 20151125
  Serious: Yes (Life-Threatening, Hospitalization)
  Sender: FDA-Public Use
  Company Number: DK-JNJFOC-20150904922

PATIENT
  Age: 29 Year
  Sex: Female

DRUGS (2)
  1. CONCERTA [Suspect]
     Active Substance: METHYLPHENIDATE HYDROCHLORIDE
     Indication: ATTENTION DEFICIT/HYPERACTIVITY DISORDER
     Route: 048
     Dates: start: 201503
  2. CONCERTA [Suspect]
     Active Substance: METHYLPHENIDATE HYDROCHLORIDE
     Indication: ATTENTION DEFICIT/HYPERACTIVITY DISORDER
     Route: 048
     Dates: end: 20150826

REACTIONS (12)
  - Throat irritation [Recovered/Resolved]
  - Off label use [Unknown]
  - Sedation [Unknown]
  - Respiratory arrest [Recovered/Resolved]
  - Slow speech [Recovered/Resolved]
  - Asthenia [Recovered/Resolved]
  - Bradyphrenia [Unknown]
  - Aphasia [Recovered/Resolved]
  - Apnoea [Recovered/Resolved with Sequelae]
  - Chest pain [Unknown]
  - Burning sensation [Recovered/Resolved]
  - Chest discomfort [Recovered/Resolved]

NARRATIVE: CASE EVENT DATE: 201508
